FAERS Safety Report 23378693 (Version 1)
Quarter: 2024Q1

REPORT INFORMATION
  Report Type: Spontaneous
  Country: US (occurrence: US)
  Receive Date: 20240108
  Receipt Date: 20240108
  Transmission Date: 20240410
  Serious: Yes (Hospitalization, Other)
  Sender: FDA-Public Use
  Company Number: US-AMNEAL PHARMACEUTICALS-2023-AMRX-04611

PATIENT
  Age: 12 Year
  Sex: Female
  Weight: 63 kg

DRUGS (1)
  1. AMLODIPINE BESYLATE [Suspect]
     Active Substance: AMLODIPINE BESYLATE
     Indication: Product used for unknown indication
     Dosage: 300 MILLIGRAM
     Route: 048

REACTIONS (10)
  - Acute kidney injury [Recovering/Resolving]
  - Renal failure [Recovering/Resolving]
  - Acute respiratory distress syndrome [Recovering/Resolving]
  - Multiple organ dysfunction syndrome [Recovering/Resolving]
  - Abdominal pain [Recovering/Resolving]
  - Hypoxia [Recovering/Resolving]
  - Intentional overdose [Unknown]
  - Vomiting [Recovering/Resolving]
  - Hypotension [Recovering/Resolving]
  - Tachycardia [Recovering/Resolving]
